FAERS Safety Report 8549155-8 (Version None)
Quarter: 2012Q3

REPORT INFORMATION
  Report Type: 
  Country: None (occurrence: None)
  Receive Date: 20120730
  Receipt Date: 20120717
  Transmission Date: 20120928
  Serious: Yes (Other)
  Sender: FDA-Public Use
  Company Number: JP-UCBSA-058268

PATIENT
  Age: 36 Year
  Sex: Female

DRUGS (3)
  1. XYZAL [Suspect]
     Indication: HYPERSENSITIVITY
     Route: 048
     Dates: end: 20120523
  2. XYZAL [Suspect]
     Indication: RHINITIS ALLERGIC
     Route: 048
     Dates: end: 20120523
  3. RASILEZ [Suspect]
     Route: 048

REACTIONS (1)
  - LIVER FUNCTION TEST ABNORMAL [None]
